FAERS Safety Report 10182683 (Version 1)
Quarter: 2014Q2

REPORT INFORMATION
  Report Type: Spontaneous
  Country: TR (occurrence: None)
  Receive Date: 20140516
  Receipt Date: 20140516
  Transmission Date: 20141212
  Serious: Yes (Other)
  Sender: FDA-Public Use
  Company Number: B0992053A

PATIENT
  Sex: 0

DRUGS (6)
  1. ETOPOSIDE [Suspect]
     Indication: HODGKIN^S DISEASE
  2. ETOPOSIDE [Suspect]
     Indication: HODGKIN^S DISEASE
     Route: 042
  3. MELPHALAN [Suspect]
     Indication: HODGKIN^S DISEASE
     Route: 042
  4. CARMUSTINE [Suspect]
     Indication: HODGKIN^S DISEASE
     Route: 042
  5. CYTARABINE (CYTARABINE) [Suspect]
     Indication: HODGKIN^S DISEASE
     Route: 042
  6. GRANULOCYTE COLONY STIMULATING FACTOR [Suspect]
     Indication: HODGKIN^S DISEASE

REACTIONS (1)
  - Acute leukaemia [None]
